FAERS Safety Report 24338798 (Version 1)
Quarter: 2024Q3

REPORT INFORMATION
  Report Type: Spontaneous
  Country: US (occurrence: None)
  Receive Date: 20240918
  Receipt Date: 20240918
  Transmission Date: 20241017
  Serious: Yes (Death)
  Sender: Public
  Company Number: None

PATIENT
  Age: 66 Year
  Sex: Female

DRUGS (1)
  1. LENALIDOMIDE [Suspect]
     Active Substance: LENALIDOMIDE
     Indication: Plasma cell myeloma
     Dosage: FREQUENCY : DAILY;?
     Route: 048
     Dates: start: 20170426, end: 20240812

REACTIONS (4)
  - Cardiac failure acute [None]
  - Pulmonary hypertension [None]
  - Performance status decreased [None]
  - Therapy interrupted [None]

NARRATIVE: CASE EVENT DATE: 20240901
